FAERS Safety Report 6156729-0 (Version None)
Quarter: 2009Q2

REPORT INFORMATION
  Report Type: 
  Country: None (occurrence: None)
  Receive Date: 20090413
  Receipt Date: 20090413
  Transmission Date: 20091009
  Serious: Yes (Hospitalization)
  Sender: FDA-Public Use
  Company Number: None

PATIENT
  Age: 54 Year
  Sex: Female
  Weight: 53 kg

DRUGS (2)
  1. IBUPROFEN TABLETS [Suspect]
     Indication: CHILLS
     Dosage: 200MG Q4H PO
     Route: 048
     Dates: start: 20090309, end: 20090319
  2. IBUPROFEN TABLETS [Suspect]
     Indication: PYREXIA
     Dosage: 200MG Q4H PO
     Route: 048
     Dates: start: 20090309, end: 20090319

REACTIONS (6)
  - AUTOIMMUNE DISORDER [None]
  - BLISTER [None]
  - INFECTION [None]
  - RASH VESICULAR [None]
  - STEVENS-JOHNSON SYNDROME [None]
  - TOXIC EPIDERMAL NECROLYSIS [None]
